FAERS Safety Report 7103208-X (Version None)
Quarter: 2010Q4

REPORT INFORMATION
  Report Type: 
  Country: None (occurrence: None)
  Receive Date: 20101115
  Receipt Date: 20090323
  Transmission Date: 20110411
  Serious: No
  Sender: FDA-Public Use
  Company Number: US-KINGPHARMUSA00001-K200900338

PATIENT
  Sex: Male
  Weight: 99.773 kg

DRUGS (6)
  1. AVINZA [Suspect]
     Indication: BACK PAIN
     Dosage: 90 MG QAM, 30 MG QPM
     Route: 048
     Dates: start: 20050101
  2. OXYCODONE HCL [Concomitant]
     Indication: BREAKTHROUGH PAIN
     Dosage: UNK
     Route: 048
  3. METOPROLOL [Concomitant]
     Indication: HYPERTENSION
     Dosage: UNK
     Route: 048
  4. INDOMETHACIN [Concomitant]
     Dosage: UNK
     Route: 048
  5. DOXAZOSIN MESYLATE [Concomitant]
     Indication: HYPERTENSION
     Dosage: UNK
     Route: 048
  6. HYDROMORPHONE HCL [Concomitant]
     Indication: SLEEP DISORDER
     Dosage: UNK
     Route: 048

REACTIONS (2)
  - DRUG DIVERSION [None]
  - WITHDRAWAL SYNDROME [None]
